FAERS Safety Report 4277614-5 (Version None)
Quarter: 2004Q1

REPORT INFORMATION
  Report Type: 
  Country: None (occurrence: None)
  Receive Date: 20040121
  Receipt Date: 20040114
  Transmission Date: 20041129
  Serious: Yes (Hospitalization)
  Sender: FDA-Public Use
  Company Number: 2004UW00728

PATIENT
  Age: 4 Year
  Sex: Female

DRUGS (2)
  1. IRESSA [Suspect]
     Indication: NEPHROBLASTOMA
     Dates: start: 20031105, end: 20040101
  2. IRESSA [Suspect]
     Indication: NEPHROBLASTOMA
     Dates: start: 20040103

REACTIONS (6)
  - DIARRHOEA [None]
  - NAUSEA [None]
  - OTITIS MEDIA [None]
  - PSEUDOMONAS INFECTION [None]
  - PYREXIA [None]
  - VOMITING [None]
